FAERS Safety Report 14527661 (Version 1)
Quarter: 2018Q1

REPORT INFORMATION
  Report Type: Spontaneous
  Country: FR (occurrence: FR)
  Receive Date: 20180213
  Receipt Date: 20180213
  Transmission Date: 20180509
  Serious: Yes (Hospitalization)
  Sender: FDA-Public Use
  Company Number: FR-TEVA-2018-FR-855870

PATIENT
  Age: 87 Year
  Sex: Female
  Weight: 52 kg

DRUGS (6)
  1. FUROSEMIDE. [Concomitant]
     Active Substance: FUROSEMIDE
     Dosage: 20 MILLIGRAM DAILY;
     Route: 048
     Dates: start: 20170322
  2. ALLOPURINOL. [Suspect]
     Active Substance: ALLOPURINOL
     Indication: HYPERURICAEMIA
     Dosage: 100 MILLIGRAM DAILY;
     Route: 048
     Dates: start: 201705, end: 20171010
  3. VOLIBRIS 5 MG, COMPRIM? PELLICUL? [Suspect]
     Active Substance: AMBRISENTAN
     Indication: PULMONARY ARTERIAL HYPERTENSION
     Dosage: 5 MILLIGRAM DAILY;
     Route: 048
     Dates: start: 201612, end: 20171010
  4. DOMPERIDONE [Concomitant]
     Active Substance: DOMPERIDONE
     Dosage: 30 MILLIGRAM DAILY;
     Route: 048
     Dates: start: 201610
  5. LANSOPRAZOLE. [Suspect]
     Active Substance: LANSOPRAZOLE
     Indication: PEPTIC ULCER
     Dosage: 30 MILLIGRAM DAILY;
     Route: 048
     Dates: end: 20171010
  6. KARDEGIC 75 MG, [Concomitant]
     Dosage: 75 MILLIGRAM DAILY;
     Route: 048
     Dates: start: 2012

REACTIONS (1)
  - Hepatocellular injury [Recovered/Resolved]

NARRATIVE: CASE EVENT DATE: 20171008
